FAERS Safety Report 7035149-0 (Version None)
Quarter: 2010Q4

REPORT INFORMATION
  Report Type: 
  Country: None (occurrence: None)
  Receive Date: 20101008
  Receipt Date: 20100902
  Transmission Date: 20110411
  Serious: Yes (Disabling, Other)
  Sender: FDA-Public Use
  Company Number: US-BAYER-200938780NA

PATIENT
  Age: 50 Year
  Sex: Male
  Weight: 77 kg

DRUGS (22)
  1. MAGNEVIST [Suspect]
     Indication: NUCLEAR MAGNETIC RESONANCE IMAGING
  2. OMNISCAN [Suspect]
     Indication: NUCLEAR MAGNETIC RESONANCE IMAGING
     Dosage: AS USED: 20 ML
     Dates: start: 20050815, end: 20050815
  3. OMNISCAN [Suspect]
     Dates: start: 20050922, end: 20050922
  4. OMNISCAN [Suspect]
     Dosage: AS USED: 20 ML
     Dates: start: 20050825, end: 20050825
  5. OMNISCAN [Suspect]
     Dosage: AS USED: 10 ML
     Dates: start: 20050929, end: 20050929
  6. OPTIMARK [Suspect]
     Indication: NUCLEAR MAGNETIC RESONANCE IMAGING
  7. MULTIHANCE [Suspect]
     Indication: NUCLEAR MAGNETIC RESONANCE IMAGING
  8. PROHANCE [Suspect]
     Indication: NUCLEAR MAGNETIC RESONANCE IMAGING
  9. UNSPECIFIED GADOILINIUM CONTRAST BASED AGENT [Suspect]
     Indication: NUCLEAR MAGNETIC RESONANCE IMAGING
     Dates: start: 20060301, end: 20060301
  10. UNSPECIFIED GADOILINIUM CONTRAST BASED AGENT [Suspect]
     Dates: start: 20060401, end: 20060401
  11. METHADONE [Concomitant]
  12. PROTONIX [Concomitant]
  13. FLOMAX [Concomitant]
  14. TRICOR [Concomitant]
  15. TENORMIN [Concomitant]
  16. PHOSPHA 250 NEUTRAL [Concomitant]
  17. REMERON [Concomitant]
  18. ATIVAN [Concomitant]
  19. VIOKASE 16 [Concomitant]
  20. POTASSIUM PHOSPHATES [Concomitant]
  21. MAGNESIUM CHLORIDE [Concomitant]
  22. QUESTRAN [Concomitant]

REACTIONS (22)
  - ARTHRALGIA [None]
  - DEFORMITY [None]
  - ERYTHEMA [None]
  - EXTREMITY CONTRACTURE [None]
  - FATIGUE [None]
  - GENERAL PHYSICAL HEALTH DETERIORATION [None]
  - JOINT RANGE OF MOTION DECREASED [None]
  - JOINT STIFFNESS [None]
  - MYALGIA [None]
  - NEPHROGENIC SYSTEMIC FIBROSIS [None]
  - OEDEMA [None]
  - PAIN [None]
  - PAIN IN EXTREMITY [None]
  - SCAR [None]
  - SKIN FIBROSIS [None]
  - SKIN HYPERTROPHY [None]
  - SKIN INDURATION [None]
  - SKIN LESION [None]
  - SKIN NODULE [None]
  - SKIN SWELLING [None]
  - SKIN TIGHTNESS [None]
  - SKIN ULCER [None]
